FAERS Safety Report 5091987-5 (Version None)
Quarter: 2006Q3

REPORT INFORMATION
  Report Type: 
  Country: None (occurrence: None)
  Receive Date: 20060825
  Receipt Date: 20060811
  Transmission Date: 20061208
  Serious: Yes (Other)
  Sender: FDA-Public Use
  Company Number: DE200608002846

PATIENT
  Age: 72 Year
  Sex: Female

DRUGS (9)
  1. FORTEO [Suspect]
     Indication: DRUG USE FOR UNKNOWN INDICATION
     Dosage: 20 UG, DAILY (1/D), SUBCUTANEOUS
     Route: 058
  2. FORTEO [Concomitant]
  3. VALORON [Concomitant]
  4. PANTOZOL [Concomitant]
  5. RUDOTEL          (MEDAZEPAM) [Concomitant]
  6. NORVASC [Concomitant]
  7. RYTMONORM                         /GFR/(PROPAFENONE HYDROCHLORIDE) [Concomitant]
  8. MARCUMAR [Concomitant]
  9. EINSALPHA                (ALFACALCIDOL) [Concomitant]

REACTIONS (1)
  - PROTHROMBIN TIME SHORTENED [None]
